FAERS Safety Report 16345921 (Version 3)
Quarter: 2019Q3

REPORT INFORMATION
  Report Type: Report from Study
  Country: JP (occurrence: JP)
  Receive Date: 20190523
  Receipt Date: 20190911
  Transmission Date: 20191004
  Serious: Yes (Hospitalization, Other)
  Sender: FDA-Public Use
  Company Number: JP-GLAXOSMITHKLINE-JP2019JPN013726

PATIENT
  Age: 5 Decade
  Sex: Female
  Weight: 38 kg

DRUGS (57)
  1. PREDNISOLONE. [Suspect]
     Active Substance: PREDNISOLONE
     Dosage: 20 MG, 1D
     Route: 048
     Dates: start: 20180622, end: 20180705
  2. PREDNISOLONE. [Suspect]
     Active Substance: PREDNISOLONE
     Dosage: 14 MG, 1D
     Route: 048
     Dates: start: 20180817, end: 20180913
  3. NEORAL [Suspect]
     Active Substance: CYCLOSPORINE
     Indication: LUPUS NEPHRITIS
     Dosage: UNK
     Route: 048
     Dates: start: 20180502
  4. MYCOPHENOLATE MOFETIL. [Concomitant]
     Active Substance: MYCOPHENOLATE MOFETIL
     Indication: SYSTEMIC LUPUS ERYTHEMATOSUS
     Dosage: UNK
  5. BONALON TABLET [Concomitant]
     Indication: OSTEOPOROSIS PROPHYLAXIS
     Dosage: UNK
  6. REBAMIPIDE TABLETS [Concomitant]
     Indication: PROPHYLAXIS AGAINST GASTROINTESTINAL ULCER
     Dosage: UNK
  7. LEVOFLOXACIN TABLETS [Concomitant]
     Active Substance: LEVOFLOXACIN
     Dosage: UNK
  8. FRANDOL TAPE [Concomitant]
     Active Substance: ISOSORBIDE DINITRATE
     Indication: ISCHAEMIC HEART DISEASE PROPHYLAXIS
  9. BELIMUMAB [Suspect]
     Active Substance: BELIMUMAB
     Indication: LUPUS NEPHRITIS
     Dosage: 10 MG/KG, ONCE IN EVERY FOUR WEEKS
     Route: 041
     Dates: start: 20180413, end: 20180830
  10. PREDNISOLONE. [Suspect]
     Active Substance: PREDNISOLONE
     Dosage: 30 MG, 1D
     Route: 048
     Dates: start: 20180530, end: 20180612
  11. PREDNISOLONE. [Suspect]
     Active Substance: PREDNISOLONE
     Dosage: 15 MG, 1D
     Route: 048
     Dates: start: 20180720, end: 20180816
  12. PREDNISOLONE. [Suspect]
     Active Substance: PREDNISOLONE
     Dosage: 12 MG, 1D
     Route: 048
     Dates: start: 20181221, end: 20190124
  13. AZOSEMIDE [Concomitant]
     Active Substance: AZOSEMIDE
     Indication: SYSTEMIC LUPUS ERYTHEMATOSUS
     Dosage: UNK
  14. BAKTAR COMBINATION TABLETS [Concomitant]
     Active Substance: SULFAMETHOXAZOLE\TRIMETHOPRIM
     Indication: INFECTION PROPHYLAXIS
     Dosage: UNK
  15. ACTONEL TABLETS [Concomitant]
     Indication: OSTEOPOROSIS PROPHYLAXIS
     Dosage: UNK
  16. TAKECAB TABLETS [Concomitant]
     Indication: PROPHYLAXIS AGAINST GASTROINTESTINAL ULCER
     Dosage: UNK
  17. D-SORBITOL [Concomitant]
     Dosage: UNK
  18. STARSIS [Concomitant]
     Active Substance: NATEGLINIDE
     Dosage: UNK
  19. SODIUM PICOSULFATE ORAL SOLUTION [Concomitant]
     Dosage: UNK
  20. LYRICA [Concomitant]
     Active Substance: PREGABALIN
     Dosage: UNK
  21. PREDNISOLONE. [Suspect]
     Active Substance: PREDNISOLONE
     Dosage: 10 MG, 1D
     Route: 048
     Dates: start: 20180412, end: 20180422
  22. CIPROFLOXACIN HYDROCHLORIDE HYDRATE [Concomitant]
     Dosage: UNK
  23. ZETIA TABLETS [Concomitant]
     Dosage: UNK
  24. HALIZON SYRUP [Concomitant]
     Dosage: UNK
  25. MIYA-BM TABLETS [Concomitant]
     Dosage: UNK
  26. FRANDOL TAPE [Concomitant]
     Active Substance: ISOSORBIDE DINITRATE
     Indication: CHEST PAIN
     Dosage: UNK
  27. PREDNISOLONE. [Suspect]
     Active Substance: PREDNISOLONE
     Dosage: 35 MG, 1D
     Route: 048
     Dates: start: 20180516, end: 20180529
  28. PREDNISOLONE. [Suspect]
     Active Substance: PREDNISOLONE
     Dosage: 10 MG, 1D
     Route: 048
     Dates: start: 20190222
  29. TELMISARTAN. [Concomitant]
     Active Substance: TELMISARTAN
     Dosage: UNK
  30. VALIXA [Concomitant]
     Active Substance: VALGANCICLOVIR
     Dosage: UNK
  31. PREDNISOLONE. [Suspect]
     Active Substance: PREDNISOLONE
     Indication: SYSTEMIC LUPUS ERYTHEMATOSUS
     Dosage: 15 MG, 1D
     Route: 048
     Dates: start: 20180316, end: 20180327
  32. PREDNISOLONE. [Suspect]
     Active Substance: PREDNISOLONE
     Dosage: 30 MG, 1D
     Route: 048
     Dates: start: 20180423, end: 20180423
  33. ATORVASTATIN CALCIUM TABLET [Concomitant]
     Active Substance: ATORVASTATIN CALCIUM
     Dosage: UNK
  34. SENNOSIDE [Concomitant]
     Active Substance: SENNOSIDES
     Dosage: UNK
  35. ROZEREM TABLETS [Concomitant]
     Dosage: UNK
  36. PREDNISOLONE. [Suspect]
     Active Substance: PREDNISOLONE
     Dosage: 30 MG, 1D
     Route: 048
     Dates: start: 20180427, end: 20180501
  37. PREDNISOLONE. [Suspect]
     Active Substance: PREDNISOLONE
     Dosage: 40 MG, 1D
     Route: 048
     Dates: start: 20180502, end: 20180515
  38. PREDNISOLONE. [Suspect]
     Active Substance: PREDNISOLONE
     Dosage: 25 MG, 1D
     Route: 048
     Dates: start: 20180613, end: 20180621
  39. PREDNISOLONE. [Suspect]
     Active Substance: PREDNISOLONE
     Dosage: 17.5 MG, 1D
     Route: 048
     Dates: start: 20180706, end: 20180719
  40. PLAQUENIL TABLETS (HYDROXYCHLOROQUINE SULFATE) [Concomitant]
     Indication: SYSTEMIC LUPUS ERYTHEMATOSUS
     Dosage: UNK
  41. NEORAL [Concomitant]
     Active Substance: CYCLOSPORINE
     Dosage: UNK
  42. BELIMUMAB [Suspect]
     Active Substance: BELIMUMAB
     Dosage: 10 MG/KG, ONCE IN EVERY FOUR WEEKS
     Route: 041
     Dates: start: 20180927, end: 20190221
  43. PREDNISOLONE. [Suspect]
     Active Substance: PREDNISOLONE
     Dosage: 40 MG, 1D
     Route: 048
     Dates: start: 20180424, end: 20180426
  44. PREDNISOLONE. [Suspect]
     Active Substance: PREDNISOLONE
     Dosage: 13 MG, 1D
     Route: 048
     Dates: start: 20180914, end: 20181220
  45. PREDNISOLONE. [Suspect]
     Active Substance: PREDNISOLONE
     Dosage: 11 MG, 1D
     Route: 048
     Dates: start: 20190125, end: 20190221
  46. BREDININ TABLET [Suspect]
     Active Substance: MIZORIBINE
     Indication: LUPUS NEPHRITIS
     Dosage: UNK
     Route: 048
     Dates: start: 20180526
  47. SAMTIREL ORAL SUSPENSION [Concomitant]
     Indication: INFECTION PROPHYLAXIS
     Dosage: UNK
  48. AMLODIPINE OD TABLETS [Concomitant]
     Active Substance: AMLODIPINE BESYLATE
     Dosage: UNK
  49. TENELIA TABLETS [Concomitant]
     Dosage: UNK
  50. VOGLIBOSE OD [Concomitant]
     Active Substance: VOGLIBOSE
     Dosage: UNK
  51. LOSARTAN POTASSIUM. [Concomitant]
     Active Substance: LOSARTAN POTASSIUM
     Dosage: UNK
  52. BELIMUMAB [Suspect]
     Active Substance: BELIMUMAB
     Indication: SYSTEMIC LUPUS ERYTHEMATOSUS
     Dosage: 10 MG/KG, ONCE IN EVERY TWO WEEKS
     Route: 041
     Dates: start: 20180316, end: 20180330
  53. PREDNISOLONE. [Suspect]
     Active Substance: PREDNISOLONE
     Dosage: 12.5 MG, 1D
     Route: 048
     Dates: start: 20180328, end: 20180411
  54. AMITIZA CAPSULE [Concomitant]
     Dosage: UNK
  55. KENKETSU VENOGLOBULIN-IH [Concomitant]
     Indication: HYPOGAMMAGLOBULINAEMIA
     Dosage: UNK
     Dates: start: 20181108, end: 20181108
  56. FEBURIC TABLETS [Concomitant]
     Active Substance: FEBUXOSTAT
     Dosage: UNK
  57. RILMAZAFONE HYDROCHLORIDE HYDRATE [Concomitant]
     Active Substance: RILMAZAFONE HYDROCHLORIDE
     Dosage: UNK

REACTIONS (6)
  - Herpes zoster [Recovering/Resolving]
  - Lupus nephritis [Recovering/Resolving]
  - Post herpetic neuralgia [Recovering/Resolving]
  - Hypogammaglobulinaemia [Recovered/Resolved]
  - Chest pain [Recovered/Resolved]
  - Influenza [Recovered/Resolved]

NARRATIVE: CASE EVENT DATE: 20180423
